FAERS Safety Report 21166602 (Version 5)
Quarter: 2023Q1

REPORT INFORMATION
  Report Type: Report from Study
  Country: BE (occurrence: BE)
  Receive Date: 20220803
  Receipt Date: 20230223
  Transmission Date: 20230417
  Serious: Yes (Hospitalization, Disabling)
  Sender: FDA-Public Use
  Company Number: BE-GLAXOSMITHKLINE-BE2022GSK097676

PATIENT

DRUGS (21)
  1. ATEZOLIZUMAB [Suspect]
     Active Substance: ATEZOLIZUMAB
     Indication: Ovarian epithelial cancer
     Dosage: 1200 MG
     Route: 042
     Dates: start: 20211110, end: 20211110
  2. DOXORUBICIN [Suspect]
     Active Substance: DOXORUBICIN
     Indication: Ovarian epithelial cancer
     Dosage: 1200 MG
     Route: 042
     Dates: start: 20211110, end: 20211110
  3. NIRAPARIB [Suspect]
     Active Substance: NIRAPARIB
     Indication: Ovarian epithelial cancer
     Dosage: 1200 MG
     Route: 042
     Dates: start: 20211110, end: 20211110
  4. PLACEBO [Suspect]
     Active Substance: UNSPECIFIED INGREDIENT
     Indication: Ovarian epithelial cancer
     Dosage: 1200 MG
     Route: 042
     Dates: start: 20211110, end: 20211110
  5. ATEZOLIZUMAB [Suspect]
     Active Substance: ATEZOLIZUMAB
     Dosage: 1200 MG
     Route: 042
     Dates: start: 20220525, end: 20220525
  6. DOXORUBICIN [Suspect]
     Active Substance: DOXORUBICIN
     Dosage: 1200 MG
     Route: 042
     Dates: start: 20220525, end: 20220525
  7. NIRAPARIB [Suspect]
     Active Substance: NIRAPARIB
     Dosage: 1200 MG
     Route: 042
     Dates: start: 20220525, end: 20220525
  8. PLACEBO [Suspect]
     Active Substance: UNSPECIFIED INGREDIENT
     Dosage: 1200 MG
     Route: 042
     Dates: start: 20220525, end: 20220525
  9. ATEZOLIZUMAB [Suspect]
     Active Substance: ATEZOLIZUMAB
     Indication: Ovarian epithelial cancer
     Dosage: 200 MG
     Route: 048
     Dates: start: 20220525, end: 20220614
  10. DOXORUBICIN [Suspect]
     Active Substance: DOXORUBICIN
     Indication: Ovarian epithelial cancer
     Dosage: 200 MG
     Route: 048
     Dates: start: 20220525, end: 20220614
  11. NIRAPARIB [Suspect]
     Active Substance: NIRAPARIB
     Indication: Ovarian epithelial cancer
     Dosage: 200 MG
     Route: 048
     Dates: start: 20220525, end: 20220614
  12. PLACEBO [Suspect]
     Active Substance: UNSPECIFIED INGREDIENT
     Indication: Ovarian epithelial cancer
     Dosage: 200 MG
     Route: 048
     Dates: start: 20220525, end: 20220614
  13. CARBOPLATIN [Suspect]
     Active Substance: CARBOPLATIN
     Indication: Ovarian epithelial cancer
     Dosage: 408 MG
     Route: 042
     Dates: start: 20211110, end: 20211110
  14. CARBOPLATIN [Suspect]
     Active Substance: CARBOPLATIN
     Dosage: 408 MG
     Route: 042
     Dates: start: 20220406, end: 20220406
  15. DOXORUBICIN [Suspect]
     Active Substance: DOXORUBICIN
     Indication: Ovarian epithelial cancer
     Dosage: 54 MG
     Route: 042
     Dates: start: 20211110, end: 20211110
  16. DOXORUBICIN [Suspect]
     Active Substance: DOXORUBICIN
     Dosage: 54 MG
     Route: 042
     Dates: start: 20220406, end: 20220406
  17. COSOPT [Concomitant]
     Active Substance: DORZOLAMIDE HYDROCHLORIDE\TIMOLOL MALEATE
     Indication: Ocular hypertension
     Dosage: 5 MG/ML AND 20 MG/ML
     Route: 047
     Dates: start: 2015
  18. DEXAMETHASONE [Concomitant]
     Active Substance: DEXAMETHASONE
     Indication: Product used for unknown indication
     Dosage: 12 MG
     Route: 048
     Dates: start: 20220704, end: 20220710
  19. DEXAMETHASONE [Concomitant]
     Active Substance: DEXAMETHASONE
     Dosage: 8 MG
     Route: 048
     Dates: start: 20220711, end: 20220717
  20. DEXAMETHASONE [Concomitant]
     Active Substance: DEXAMETHASONE
     Dosage: 6 MG
     Route: 048
     Dates: start: 20220718, end: 20220724
  21. SULFAMETHOXAZOLE\TRIMETHOPRIM [Concomitant]
     Active Substance: SULFAMETHOXAZOLE\TRIMETHOPRIM
     Indication: Product used for unknown indication
     Dosage: 160/800 MG, 3X WEEKLY
     Dates: start: 20220704

REACTIONS (2)
  - Immune system disorder [Recovered/Resolved with Sequelae]
  - Bronchopneumopathy [Recovered/Resolved with Sequelae]

NARRATIVE: CASE EVENT DATE: 20220622
